FAERS Safety Report 23513340 (Version 4)
Quarter: 2024Q4

REPORT INFORMATION
  Report Type: Report from Study
  Country: CA (occurrence: CA)
  Receive Date: 20240212
  Receipt Date: 20241206
  Transmission Date: 20250115
  Serious: Yes (Other)
  Sender: SAMSUNG BIOEPIS
  Company Number: CA-SAMSUNG BIOEPIS-SB-2023-29285

PATIENT
  Age: 21 Year
  Sex: Male

DRUGS (1)
  1. RENFLEXIS [Suspect]
     Active Substance: INFLIXIMAB-ABDA
     Indication: Crohn^s disease
     Dosage: INTRAVENOUS INFUSION;
     Route: 042
     Dates: start: 20230515

REACTIONS (6)
  - Middle ear effusion [Recovered/Resolved]
  - Deafness [Unknown]
  - Frequent bowel movements [Unknown]
  - Off label use [Unknown]
  - Ear infection [Recovered/Resolved]
  - Ear pain [Unknown]

NARRATIVE: CASE EVENT DATE: 20231010
